FAERS Safety Report 18637822 (Version 4)
Quarter: 2021Q2

REPORT INFORMATION
  Report Type: Spontaneous
  Country: US (occurrence: US)
  Receive Date: 20201218
  Receipt Date: 20210423
  Transmission Date: 20210717
  Serious: No
  Sender: FDA-Public Use
  Company Number: US-BRISTOL-MYERS SQUIBB COMPANY-BMS-2020-108498

PATIENT
  Age: 60 Year
  Sex: Female

DRUGS (2)
  1. ORENCIA [Suspect]
     Active Substance: ABATACEPT
     Indication: ANKYLOSING SPONDYLITIS
     Dosage: 125MG/ML, QWK
     Route: 058
     Dates: start: 20201120
  2. ORENCIA [Suspect]
     Active Substance: ABATACEPT
     Indication: PSORIATIC ARTHROPATHY
     Dosage: 125MG/ML,QWK
     Route: 058
     Dates: start: 20201111

REACTIONS (4)
  - Intentional product use issue [Unknown]
  - Paraesthesia [Unknown]
  - Tinnitus [Unknown]
  - Skin disorder [Unknown]

NARRATIVE: CASE EVENT DATE: 202012
